FAERS Safety Report 8515754 (Version 3)
Quarter: 2013Q3

REPORT INFORMATION
  Report Type: Spontaneous
  Country: US (occurrence: US)
  Receive Date: 20120417
  Receipt Date: 20130703
  Transmission Date: 20140515
  Serious: Yes (Hospitalization, Other)
  Sender: FDA-Public Use
  Company Number: US-PFIZER INC-2012092073

PATIENT
  Age: 61 Year
  Sex: Female
  Weight: 90.7 kg

DRUGS (14)
  1. ALDACTONE [Suspect]
     Indication: VIRILISM
     Dosage: 25 MG, 1X/DAY
     Route: 048
     Dates: start: 1980
  2. ALDACTONE [Suspect]
     Indication: POLYCYSTIC OVARIES
     Dosage: 50 MG, UNK
  3. ALDACTONE [Suspect]
     Indication: BLOOD TESTOSTERONE INCREASED
  4. SPIRONOLACTONE [Suspect]
     Indication: VIRILISM
     Dosage: 25 MG, 1X/DAY
     Route: 048
     Dates: end: 2003
  5. SPIRONOLACTONE [Suspect]
     Indication: POLYCYSTIC OVARIES
     Dosage: 50 MG, 2X/DAY
     Route: 048
     Dates: start: 1990
  6. SPIRONOLACTONE [Suspect]
     Indication: BLOOD TESTOSTERONE INCREASED
  7. LASIX [Concomitant]
     Indication: HYPERTENSION
     Dosage: 40 MG, 1X/DAY
     Dates: start: 2003
  8. LISINOPRIL [Concomitant]
     Indication: HYPERTENSION
     Dosage: 10 MG, 1X/DAY
     Dates: start: 2003
  9. ADVAIR [Concomitant]
     Indication: CHRONIC OBSTRUCTIVE PULMONARY DISEASE
     Dosage: UNK
     Dates: start: 2003
  10. ADVAIR [Concomitant]
     Indication: ASTHMA
  11. VENTOLIN [Concomitant]
     Indication: CHRONIC OBSTRUCTIVE PULMONARY DISEASE
     Dosage: UNK
     Dates: start: 2003
  12. VENTOLIN [Concomitant]
     Indication: ASTHMA
  13. PRAVASTATIN [Concomitant]
     Indication: BLOOD CHOLESTEROL INCREASED
     Dosage: 20 MG, 1X/DAY
     Dates: start: 2003
  14. LEVOTHYROXINE [Concomitant]
     Indication: HYPOTHYROIDISM
     Dosage: 100 UG, UNK

REACTIONS (13)
  - Pneumonia [Unknown]
  - Dyspnoea [Unknown]
  - Type 2 diabetes mellitus [Unknown]
  - Chronic obstructive pulmonary disease [Unknown]
  - Infection [Recovered/Resolved]
  - Furuncle [Recovered/Resolved]
  - Wrist fracture [Recovered/Resolved]
  - Hypertension [Unknown]
  - Scar [Recovered/Resolved]
  - Malaise [Recovered/Resolved]
  - Fall [Unknown]
  - Carpal tunnel syndrome [Unknown]
  - Osteoporosis [Unknown]
